FAERS Safety Report 5567721-9 (Version None)
Quarter: 2007Q4

REPORT INFORMATION
  Report Type: 
  Country: None (occurrence: None)
  Receive Date: 20071219
  Receipt Date: 20071211
  Transmission Date: 20080405
  Serious: Yes (Other)
  Sender: FDA-Public Use
  Company Number: GB-PFIZER INC-2007105109

PATIENT
  Age: 31 Year
  Sex: Male

DRUGS (2)
  1. CHANTIX [Suspect]
     Route: 048
  2. OTHER ANTI-ASTHMATICS, INHALANTS [Concomitant]
     Route: 055

REACTIONS (3)
  - ABNORMAL BEHAVIOUR [None]
  - AMNESIA [None]
  - DEPRESSION [None]
